FAERS Safety Report 18839208 (Version 4)
Quarter: 2023Q1

REPORT INFORMATION
  Report Type: Spontaneous
  Country: US (occurrence: US)
  Receive Date: 20210203
  Receipt Date: 20230316
  Transmission Date: 20230418
  Serious: No
  Sender: FDA-Public Use
  Company Number: US-PFIZER INC-2021098755

PATIENT
  Age: 85 Year
  Sex: Female

DRUGS (1)
  1. IBRANCE [Suspect]
     Active Substance: PALBOCICLIB
     Dosage: 75 MG, CYCLIC (1 CAPSULE BY MOUTH DAILY WITH BREAKFAST FOR 21 DAYS)
     Route: 048

REACTIONS (2)
  - Full blood count decreased [Recovering/Resolving]
  - Hypoacusis [Unknown]
